FAERS Safety Report 8051273-8 (Version None)
Quarter: 2012Q1

REPORT INFORMATION
  Report Type: 
  Country: None (occurrence: None)
  Receive Date: 20120117
  Receipt Date: 20120111
  Transmission Date: 20120608
  Serious: Yes (Life-Threatening, Hospitalization)
  Sender: FDA-Public Use
  Company Number: US-ASTRAZENECA-2011SE12838

PATIENT
  Age: 68 Year
  Sex: Female

DRUGS (9)
  1. BENAZEPRIL HYDROCHLORIDE [Concomitant]
     Dosage: 20 DAILY
  2. XANAX [Concomitant]
  3. NEXIUM [Suspect]
     Route: 048
  4. VYTORIN [Concomitant]
     Dosage: 10/40 DAILY
     Route: 048
  5. VITAMIN C [Concomitant]
     Route: 048
  6. ZOLOFT [Concomitant]
     Dosage: 100  DAILY
     Route: 048
  7. GLUCOPHAGE [Concomitant]
     Dosage: 1000 TWICE DAILY
  8. PREVACID [Concomitant]
  9. ASPIRIN [Concomitant]
     Route: 048

REACTIONS (19)
  - PNEUMONIA ASPIRATION [None]
  - LYMPHADENOPATHY [None]
  - ANASTOMOTIC LEAK [None]
  - COELIAC ARTERY STENOSIS [None]
  - LEUKOCYTOSIS [None]
  - NAUSEA [None]
  - PLEURAL EFFUSION [None]
  - INTESTINAL ISCHAEMIA [None]
  - OESOPHAGEAL ADENOCARCINOMA [None]
  - LIVER FUNCTION TEST ABNORMAL [None]
  - HYPOMAGNESAEMIA [None]
  - MESENTERIC ARTERY STENOSIS [None]
  - VENOUS INSUFFICIENCY [None]
  - ABDOMINAL DISTENSION [None]
  - RESPIRATORY FAILURE [None]
  - PROCEDURAL HYPOTENSION [None]
  - PSEUDODIVERTICULAR DISEASE [None]
  - OESOPHAGITIS [None]
  - DRUG DOSE OMISSION [None]
